FAERS Safety Report 24696076 (Version 1)
Quarter: 2024Q4

REPORT INFORMATION
  Report Type: Spontaneous
  Country: FR (occurrence: FR)
  Receive Date: 20241204
  Receipt Date: 20241204
  Transmission Date: 20250115
  Serious: Yes (Other)
  Sender: GLAXOSMITHKLINE
  Company Number: None

PATIENT

DRUGS (2)
  1. LAMICTAL [Suspect]
     Active Substance: LAMOTRIGINE
     Indication: Generalised tonic-clonic seizure
     Dosage: 100 MG, QD
     Route: 048
     Dates: end: 20241021
  2. VALPROATE SODIUM [Suspect]
     Active Substance: VALPROATE SODIUM
     Indication: Generalised tonic-clonic seizure
     Dosage: 1.5 G, QD
     Route: 048
     Dates: end: 20241021

REACTIONS (2)
  - Oligoasthenozoospermia [Not Recovered/Not Resolved]
  - Infertility male [Not Recovered/Not Resolved]

NARRATIVE: CASE EVENT DATE: 20241007
